FAERS Safety Report 8415014-4 (Version None)
Quarter: 2012Q2

REPORT INFORMATION
  Report Type: 
  Country: None (occurrence: None)
  Receive Date: 20120606
  Receipt Date: 20120528
  Transmission Date: 20120825
  Serious: Yes (Hospitalization)
  Sender: FDA-Public Use
  Company Number: JP-VERTEX PHARMACEUTICALS INC.-AE-2012-005204

PATIENT
  Age: 70 Year
  Sex: Male

DRUGS (9)
  1. MIYA BM [Concomitant]
     Route: 048
     Dates: start: 20120316, end: 20120329
  2. PEG-INTRON [Concomitant]
     Indication: HEPATITIS C
     Route: 051
     Dates: start: 20120216, end: 20120308
  3. PEG-INTRON [Concomitant]
     Route: 051
     Dates: start: 20120323, end: 20120502
  4. UBIRON [Concomitant]
     Route: 048
     Dates: start: 20120329
  5. TELAVIC (TELAPREVIR) [Suspect]
     Indication: HEPATITIS C
     Route: 048
     Dates: start: 20120216, end: 20120310
  6. RIBAVIRIN [Concomitant]
     Indication: HEPATITIS C
     Route: 048
     Dates: start: 20120216, end: 20120310
  7. NESINA [Concomitant]
     Route: 048
     Dates: end: 20120229
  8. DIOVAN [Concomitant]
     Route: 048
  9. FAMOTIDINE D [Concomitant]
     Route: 048
     Dates: start: 20120216, end: 20120224

REACTIONS (3)
  - NAUSEA [None]
  - DECREASED APPETITE [None]
  - VOMITING [None]
